FAERS Safety Report 4917241-7 (Version None)
Quarter: 2006Q1

REPORT INFORMATION
  Report Type: 
  Country: None (occurrence: None)
  Receive Date: 20060221
  Receipt Date: 20030605
  Transmission Date: 20060701
  Serious: Yes (Death, Hospitalization, Disabling, Other)
  Sender: FDA-Public Use
  Company Number: US-MERCK-0306USA00753

PATIENT
  Age: 62 Year
  Sex: Female
  Weight: 75 kg

DRUGS (22)
  1. VIOXX [Suspect]
     Indication: ARTHRALGIA
     Route: 048
     Dates: start: 20000805, end: 20010621
  2. VIOXX [Suspect]
     Indication: POLYARTHRITIS
     Route: 048
     Dates: start: 20000805, end: 20010621
  3. PLAVIX [Concomitant]
     Route: 048
  4. GINKGO BILOBA FORTE [Concomitant]
     Route: 048
  5. IMDUR [Concomitant]
     Route: 048
  6. IMDUR [Concomitant]
     Route: 048
  7. NORVASC [Concomitant]
     Route: 048
  8. TRAZODONE HYDROCHLORIDE [Concomitant]
     Route: 048
  9. METOPROLOL [Concomitant]
     Route: 048
  10. LYSINE [Concomitant]
     Route: 048
  11. LANOXIN [Concomitant]
     Route: 048
  12. LASIX [Concomitant]
     Route: 048
  13. XANAX [Concomitant]
     Route: 048
  14. ULTRAM [Concomitant]
     Route: 048
  15. HUMULIN 70/30 [Concomitant]
     Route: 058
  16. HUMULIN 70/30 [Concomitant]
     Route: 058
  17. AVANDIA [Concomitant]
     Route: 048
     Dates: start: 20010401
  18. ASPIRIN [Concomitant]
     Route: 048
  19. PRAVACHOL [Concomitant]
     Route: 048
  20. SONATA [Concomitant]
     Route: 048
  21. PAXIL [Concomitant]
     Route: 048
  22. PREVACID [Concomitant]
     Route: 048

REACTIONS (37)
  - ANAEMIA [None]
  - ANGINA PECTORIS [None]
  - ARTERIOSCLEROSIS CORONARY ARTERY [None]
  - ASTHENIA [None]
  - ATRIAL FIBRILLATION [None]
  - BLOOD PRESSURE INCREASED [None]
  - BRAIN STEM INFARCTION [None]
  - CARDIAC DISORDER [None]
  - CEREBRAL DISORDER [None]
  - CEREBROVASCULAR ACCIDENT [None]
  - CHEST DISCOMFORT [None]
  - COLONIC POLYP [None]
  - CONVULSION [None]
  - COORDINATION ABNORMAL [None]
  - DEATH [None]
  - DEMENTIA [None]
  - DEPRESSED LEVEL OF CONSCIOUSNESS [None]
  - DEPRESSION [None]
  - DIABETES MELLITUS [None]
  - DIVERTICULUM [None]
  - DIZZINESS [None]
  - DYSPNOEA [None]
  - DYSSTASIA [None]
  - ELECTROCARDIOGRAM ST-T CHANGE [None]
  - FALL [None]
  - GASTROINTESTINAL HAEMORRHAGE [None]
  - HIATUS HERNIA [None]
  - INCONTINENCE [None]
  - LOSS OF CONSCIOUSNESS [None]
  - MEMORY IMPAIRMENT [None]
  - NORMAL PRESSURE HYDROCEPHALUS [None]
  - OCCULT BLOOD POSITIVE [None]
  - OESOPHAGITIS [None]
  - PYREXIA [None]
  - RESPIRATORY FAILURE [None]
  - SINUS BRADYCARDIA [None]
  - WHITE BLOOD CELL COUNT DECREASED [None]
